FAERS Safety Report 10211069 (Version 1)
Quarter: 2014Q2

REPORT INFORMATION
  Report Type: Spontaneous
  Country: GB (occurrence: GB)
  Receive Date: 20140602
  Receipt Date: 20140602
  Transmission Date: 20141212
  Serious: Yes (Hospitalization)
  Sender: FDA-Public Use
  Company Number: PHFR2014GB003817

PATIENT
  Age: 30 Year
  Sex: Male

DRUGS (2)
  1. CLOZARIL [Suspect]
     Indication: SCHIZOPHRENIA
     Dosage: UNK
     Route: 048
     Dates: start: 20100610
  2. INSULIN [Suspect]
     Dosage: UNK
     Route: 042

REACTIONS (3)
  - Medication error [Unknown]
  - White blood cell count increased [Unknown]
  - Neutrophil count increased [Unknown]
